FAERS Safety Report 5677891-X (Version None)
Quarter: 2008Q1

REPORT INFORMATION
  Report Type: 
  Country: None (occurrence: None)
  Receive Date: 20080319
  Receipt Date: 20080305
  Transmission Date: 20080703
  Serious: Yes (Hospitalization)
  Sender: FDA-Public Use
  Company Number: 232249J08USA

PATIENT
  Age: 46 Year
  Sex: Female
  Weight: 77.1115 kg

DRUGS (3)
  1. REBIF [Suspect]
     Indication: MULTIPLE SCLEROSIS
     Dosage: 44 MCG, 3 IN 1 WEEKS, SUBCUTANEOUS
     Route: 058
     Dates: start: 20071012
  2. ZOCOR [Concomitant]
  3. ZOLOFT [Concomitant]

REACTIONS (6)
  - ANKLE FRACTURE [None]
  - FIBULA FRACTURE [None]
  - OPEN FRACTURE [None]
  - POST PROCEDURAL COMPLICATION [None]
  - TIBIA FRACTURE [None]
  - WOUND NECROSIS [None]
